FAERS Safety Report 24294798 (Version 1)
Quarter: 2024Q3

REPORT INFORMATION
  Report Type: Spontaneous
  Country: IT (occurrence: IT)
  Receive Date: 20240907
  Receipt Date: 20240907
  Transmission Date: 20241017
  Serious: Yes (Hospitalization, Other)
  Sender: AMGEN
  Company Number: IT-AMGEN-ITASP2024171760

PATIENT
  Age: 66 Year
  Sex: Female

DRUGS (1)
  1. LUMAKRAS [Suspect]
     Active Substance: SOTORASIB
     Indication: Product used for unknown indication
     Dosage: UNK
     Route: 065

REACTIONS (7)
  - Panniculitis [Unknown]
  - Metastases to central nervous system [Unknown]
  - Bone marrow failure [Not Recovered/Not Resolved]
  - Pericarditis [Unknown]
  - Pneumonia [Recovered/Resolved]
  - Adverse reaction [Unknown]
  - Pericardial disease [Unknown]

NARRATIVE: CASE EVENT DATE: 20220101
